FAERS Safety Report 22962022 (Version 3)
Quarter: 2023Q4

REPORT INFORMATION
  Report Type: Spontaneous
  Country: JP (occurrence: JP)
  Receive Date: 20230920
  Receipt Date: 20231025
  Transmission Date: 20240110
  Serious: Yes (Death, Hospitalization, Other)
  Sender: FDA-Public Use
  Company Number: JP-UCBSA-2023045999

PATIENT
  Age: 91 Year
  Sex: Female
  Weight: 44.1 kg

DRUGS (18)
  1. VIMPAT [Suspect]
     Active Substance: LACOSAMIDE
     Indication: Epilepsy
     Dosage: 200 MILLIGRAM, 2X/DAY (BID)
     Route: 048
     Dates: start: 20221112, end: 20230214
  2. VIMPAT [Suspect]
     Active Substance: LACOSAMIDE
     Dosage: 300 MILLIGRAM, ONCE DAILY (QD)
     Route: 048
     Dates: start: 20230215, end: 20230322
  3. VIMPAT [Suspect]
     Active Substance: LACOSAMIDE
     Dosage: 200 MILLIGRAM, 2X/DAY (BID)
     Route: 048
     Dates: start: 20230323, end: 20230913
  4. CARBAMAZEPINE [Suspect]
     Active Substance: CARBAMAZEPINE
     Indication: Epilepsy
     Dosage: 200 MILLIGRAM, 2X/DAY (BID)
     Route: 048
     Dates: start: 20230403, end: 20230914
  5. FYCOMPA [Suspect]
     Active Substance: PERAMPANEL
     Indication: Epilepsy
     Dosage: 1 MILLIGRAM, ONCE DAILY (QD)
     Route: 048
     Dates: start: 20230215, end: 20230913
  6. CERCINE [Concomitant]
     Active Substance: DIAZEPAM
     Indication: Seizure prophylaxis
     Dosage: UNK
  7. SPIRONOLACTONE [Concomitant]
     Active Substance: SPIRONOLACTONE
     Indication: Product used for unknown indication
     Dosage: 25 MILLIGRAM, ONCE DAILY (QD)
     Route: 048
     Dates: start: 202302, end: 20230914
  8. AZOSEMIDE [Concomitant]
     Active Substance: AZOSEMIDE
     Indication: Product used for unknown indication
     Dosage: 30 MILLIGRAM, ONCE DAILY (QD)
     Route: 048
     Dates: start: 20230218, end: 20230913
  9. MAGNESIUM OXIDE [Concomitant]
     Active Substance: MAGNESIUM OXIDE
     Indication: Product used for unknown indication
     Dosage: 330 MILLIGRAM, EV 8 HOUR
     Route: 048
     Dates: start: 20230427, end: 20230914
  10. LORATADINE OD [Concomitant]
     Indication: Dry skin
     Dosage: UNK
     Route: 048
     Dates: start: 20230516, end: 20230913
  11. FAMOTIDINE [Concomitant]
     Active Substance: FAMOTIDINE
     Indication: Product used for unknown indication
     Dosage: UNK
     Route: 042
     Dates: start: 20230509, end: 20230914
  12. FOSFOMYCIN SODIUM [Concomitant]
     Active Substance: FOSFOMYCIN SODIUM
     Indication: Pyrexia
     Dosage: 1G AND SALINE 100 ML TWICE DAILY FOR
     Route: 042
     Dates: start: 20230914, end: 20230914
  13. NICHIPHARGEN [Concomitant]
     Indication: Product used for unknown indication
     Dosage: 40 MILLILITER, ONCE DAILY (QD)
     Route: 042
     Dates: start: 20230509, end: 20230912
  14. NICHIPHARGEN [Concomitant]
     Dosage: 80 MILLILITER, ONCE DAILY (QD)
     Dates: start: 20230913, end: 20230914
  15. DIAZEPAM [Concomitant]
     Active Substance: DIAZEPAM
     Indication: Product used for unknown indication
     Dosage: AS NEEDED (PRN)
     Route: 030
     Dates: start: 20230207, end: 20230426
  16. LANSOPRAZOLE [Concomitant]
     Active Substance: LANSOPRAZOLE
     Indication: Product used for unknown indication
     Dosage: UNK
     Route: 048
  17. LEVETIRACETAM [Concomitant]
     Active Substance: LEVETIRACETAM
     Indication: Product used for unknown indication
     Dosage: UNK
     Route: 048
     Dates: start: 20230207, end: 20230210
  18. LANSOPRAZOLE [Concomitant]
     Active Substance: LANSOPRAZOLE
     Indication: Product used for unknown indication
     Dosage: 15 MILLIGRAM, ONCE DAILY (QD)
     Route: 048
     Dates: start: 20230508, end: 20230508

REACTIONS (15)
  - Marasmus [Fatal]
  - Pyrexia [Fatal]
  - Status epilepticus [Recovering/Resolving]
  - Bradycardia [Not Recovered/Not Resolved]
  - Pneumonia staphylococcal [Recovered/Resolved]
  - Aspartate aminotransferase increased [Unknown]
  - Alanine aminotransferase increased [Unknown]
  - Constipation [Recovered/Resolved]
  - Dry skin [Unknown]
  - Pruritus [Unknown]
  - Hepatic function abnormal [Unknown]
  - Nausea [Recovered/Resolved]
  - Vaginal discharge [Recovering/Resolving]
  - Pleural effusion [Recovering/Resolving]
  - Off label use [Unknown]

NARRATIVE: CASE EVENT DATE: 20230207
